FAERS Safety Report 22733586 (Version 5)
Quarter: 2025Q3

REPORT INFORMATION
  Report Type: Spontaneous
  Country: EU (occurrence: EU)
  Receive Date: 20230720
  Receipt Date: 20250807
  Transmission Date: 20251021
  Serious: Yes (Congenital Anomaly, Other)
  Sender: TEVA
  Company Number: EU-TEVA-2022-DE-2066344

PATIENT
  Sex: Male

DRUGS (15)
  1. AJOVY [Suspect]
     Active Substance: FREMANEZUMAB-VFRM
     Indication: Migraine
     Route: 064
     Dates: start: 20220810
  2. BUDESONIDE\FORMOTEROL FUMARATE [Concomitant]
     Active Substance: BUDESONIDE\FORMOTEROL FUMARATE
     Indication: Asthma
     Route: 050
  3. MAGNESIUM [Concomitant]
     Active Substance: MAGNESIUM
     Indication: Product used for unknown indication
     Route: 050
  4. FOLIC ACID\IRON\MINERALS\VITAMINS [Concomitant]
     Active Substance: FOLIC ACID\IRON\MINERALS\VITAMINS
     Indication: Product used for unknown indication
     Route: 050
     Dates: start: 202210
  5. Betagalen [Concomitant]
     Indication: Skin disorder
     Route: 050
  6. Volon A-schuettelmix [Concomitant]
     Indication: Skin disorder
     Route: 050
  7. BOOSTRIX [Concomitant]
     Active Substance: TETANUS TOXOID, REDUCED DIPHTHERIA TOXOID AND ACELLULAR PERTUSSIS VACCINE ADSORBED, TDAP
     Route: 064
     Dates: start: 20230209, end: 20230209
  8. FOLIC ACID [Concomitant]
     Active Substance: FOLIC ACID
     Indication: Prophylaxis of neural tube defect
     Route: 064
  9. IBUPROFEN [Concomitant]
     Active Substance: IBUPROFEN
     Indication: Pain
     Route: 064
  10. DOMPERIDONE [Concomitant]
     Active Substance: DOMPERIDONE
     Indication: Morning sickness
     Route: 064
  11. ACETAMINOPHEN [Concomitant]
     Active Substance: ACETAMINOPHEN
     Indication: Pain
     Route: 064
  12. SUMATRIPTAN [Concomitant]
     Active Substance: SUMATRIPTAN
     Indication: Migraine
     Dosage: 100 MG IN GRAVIDITY
     Route: 064
     Dates: start: 20210703, end: 20220817
  13. NAPROXEN [Concomitant]
     Active Substance: NAPROXEN
     Indication: Pain
     Route: 064
  14. ALBUTEROL [Concomitant]
     Active Substance: ALBUTEROL
     Indication: Asthma
     Route: 064
     Dates: start: 20220703, end: 20220818
  15. LORATADINE [Concomitant]
     Active Substance: LORATADINE
     Indication: Hypersensitivity
     Route: 064

REACTIONS (6)
  - Ectrodactyly [Unknown]
  - Foetal exposure during pregnancy [Unknown]
  - Congenital aplasia [Unknown]
  - Congenital bowing of long bones [Unknown]
  - Foot deformity [Unknown]
  - Foetal monitoring abnormal [Unknown]

NARRATIVE: CASE EVENT DATE: 20220101
